FAERS Safety Report 10987698 (Version 2)
Quarter: 2015Q2

REPORT INFORMATION
  Report Type: Spontaneous
  Country: US (occurrence: US)
  Receive Date: 20150404
  Receipt Date: 20150525
  Transmission Date: 20150821
  Serious: Yes (Other)
  Sender: FDA-Public Use
  Company Number: US-JNJFOC-20091104480

PATIENT
  Sex: Female
  Weight: 97.98 kg

DRUGS (8)
  1. METHOTREXATE [Concomitant]
     Active Substance: METHOTREXATE
     Indication: RHEUMATOID ARTHRITIS
     Route: 048
  2. REMICADE [Suspect]
     Active Substance: INFLIXIMAB
     Indication: RHEUMATOID ARTHRITIS
     Route: 042
     Dates: start: 20091001
  3. BYETTA [Concomitant]
     Active Substance: EXENATIDE
  4. REMICADE [Suspect]
     Active Substance: INFLIXIMAB
     Indication: RHEUMATOID ARTHRITIS
     Route: 042
     Dates: start: 20090903
  5. TYLENOL [Concomitant]
     Active Substance: ACETAMINOPHEN
     Indication: PREMEDICATION
  6. FOLIC ACID. [Concomitant]
     Active Substance: FOLIC ACID
  7. AMARYL [Concomitant]
     Active Substance: GLIMEPIRIDE
  8. CLARITIN [Concomitant]
     Active Substance: LORATADINE
     Indication: PREMEDICATION
     Route: 048

REACTIONS (6)
  - Nausea [Recovered/Resolved]
  - Hiatus hernia [Unknown]
  - Abdominal discomfort [Unknown]
  - Back pain [Unknown]
  - Infusion related reaction [Recovered/Resolved]
  - Vomiting [Recovered/Resolved]
